FAERS Safety Report 7462039-1 (Version None)
Quarter: 2011Q2

REPORT INFORMATION
  Report Type: 
  Country: None (occurrence: None)
  Receive Date: 20110506
  Receipt Date: 20101123
  Transmission Date: 20111010
  Serious: Yes (Hospitalization, Disabling, Other)
  Sender: FDA-Public Use
  Company Number: US-BAYER-201022993NA

PATIENT
  Age: 50 Year
  Sex: Female
  Weight: 112.2 kg

DRUGS (7)
  1. HYDROCHLOROTHIAZIDE [Concomitant]
     Indication: FLUID RETENTION
     Dosage: UNK
     Dates: start: 20010101, end: 20040301
  2. MEDROXYPROGESTERONE [Concomitant]
  3. YASMIN [Suspect]
     Indication: MENORRHAGIA
     Route: 048
     Dates: start: 20040201
  4. LEVOXYL [Concomitant]
     Indication: THYROID DISORDER
     Dosage: 0.15 MG, UNK
     Dates: start: 19810101
  5. LISINOPRIL [Concomitant]
     Indication: HYPERTENSION
     Dosage: UNK
     Dates: start: 20010601
  6. IRON SULFATETHIAMIN COMPOUND TAB [Concomitant]
  7. ZESTRIL [Concomitant]
     Indication: HYPERTENSION
     Dosage: UNK
     Dates: start: 20010601

REACTIONS (5)
  - HAEMORRHAGE INTRACRANIAL [None]
  - SUBARACHNOID HAEMORRHAGE [None]
  - DEEP VEIN THROMBOSIS [None]
  - APHASIA [None]
  - CEREBROVASCULAR ACCIDENT [None]
